FAERS Safety Report 4493611-9 (Version None)
Quarter: 2004Q3

REPORT INFORMATION
  Report Type: 
  Country: None (occurrence: None)
  Receive Date: 20040921
  Receipt Date: 20031231
  Transmission Date: 20050211
  Serious: Yes (Hospitalization)
  Sender: FDA-Public Use
  Company Number: 163-20785-04010051

PATIENT
  Age: 80 Year
  Sex: Male
  Weight: 75 kg

DRUGS (25)
  1. THALOMID [Suspect]
     Indication: MULTIPLE MYELOMA
     Dosage: SEE IMAGE
     Route: 048
     Dates: start: 20011009, end: 20031027
  2. DOXIL [Suspect]
     Indication: MULTIPLE MYELOMA
     Dosage: 40 MG/M2, INTRAVENOUS
     Route: 042
     Dates: start: 20011009, end: 20020509
  3. VINCRISTINE [Suspect]
     Indication: MULTIPLE MYELOMA
     Dosage: 2 MG, INTRAVENOUS
     Route: 042
     Dates: start: 20011009, end: 20020509
  4. DECADRON [Suspect]
     Indication: MULTIPLE MYELOMA
     Dosage: 40 MG, X 4 DAY, ORAL
     Route: 048
     Dates: start: 20011009, end: 20020509
  5. PREDNISONE [Suspect]
     Indication: MULTIPLE MYELOMA
     Dosage: 50 MG, QOD, ORAL
     Route: 048
     Dates: start: 20000620
  6. PREDNISONE [Suspect]
     Indication: MULTIPLE MYELOMA
     Dosage: 50 MG, QOD, ORAL
     Route: 048
     Dates: start: 20020514
  7. COUMADIN [Concomitant]
  8. CARAFATE [Concomitant]
  9. VITAMIN C (ASCORBIC ACID) [Concomitant]
  10. MULTIVITAMIN (MULTIVITAMINS) [Concomitant]
  11. VITAMIN E [Concomitant]
  12. VITAMIN B COMPLEX (B-COMPLEX ^LECIVA^ [Concomitant]
  13. GARLIC (GARLIC) [Concomitant]
  14. PYCNOGENOL (PYNCNOGENOL) [Concomitant]
  15. GLUCOSAMIDE W/CHONDROITIN SULFATES (GLUOSAMINE W/CHONDROITIN SULFATES) [Concomitant]
  16. POTASSIUM (POTASSIUM) [Concomitant]
  17. ZINC (ZINC) [Concomitant]
  18. GINKGO BILOBA (GINKGO BILOBA) [Concomitant]
  19. CHROMIUM PICOLINATE (CHROMIUM PICOLINATE) [Concomitant]
  20. FLEXSEED OIL LINSEED OIL) [Concomitant]
  21. ASPIRIN [Concomitant]
  22. RESTORIL [Concomitant]
  23. JOINT FORMULA [Concomitant]
  24. VITAMIN B (VITAMIN B) [Concomitant]
  25. GINSENG (GINSENG) [Concomitant]

REACTIONS (19)
  - ASTHENIA [None]
  - BLOOD PRESSURE INCREASED [None]
  - CEREBRAL ISCHAEMIA [None]
  - CHEST PAIN [None]
  - CONFUSIONAL STATE [None]
  - DEHYDRATION [None]
  - ERECTILE DYSFUNCTION [None]
  - MALIGNANT PLEURAL EFFUSION [None]
  - NEUROPATHY PERIPHERAL [None]
  - NON-SMALL CELL LUNG CANCER [None]
  - NON-SMALL CELL LUNG CANCER STAGE IIIB [None]
  - NON-SMALL CELL LUNG CANCER STAGE IV [None]
  - OSTEOMYELITIS [None]
  - PHLEBOTHROMBOSIS [None]
  - PYREXIA [None]
  - RESPIRATORY FAILURE [None]
  - SINUSITIS [None]
  - SOMNOLENCE [None]
  - SYNCOPE [None]
